FAERS Safety Report 11379978 (Version 3)
Quarter: 2016Q1

REPORT INFORMATION
  Report Type: Report from Study
  Country: BR (occurrence: BR)
  Receive Date: 20150814
  Receipt Date: 20160112
  Transmission Date: 20160525
  Serious: Yes (Hospitalization)
  Sender: FDA-Public Use
  Company Number: BR-UCBSA-2015022256

PATIENT
  Age: 77 Year
  Sex: Female
  Weight: 47 kg

DRUGS (2)
  1. LOSARTAN. [Concomitant]
     Active Substance: LOSARTAN
     Indication: HYPERTENSION
     Dosage: 5 MG, ONCE DAILY (QD)
     Route: 048
     Dates: start: 1986
  2. CERTOLIZUMAB PEGOL [Suspect]
     Active Substance: CERTOLIZUMAB PEGOL
     Indication: RHEUMATOID ARTHRITIS
     Dosage: 200 MG, UNK
     Dates: start: 20150601, end: 201508

REACTIONS (7)
  - Purpura [Recovered/Resolved with Sequelae]
  - Wound [Unknown]
  - Peripheral swelling [Unknown]
  - Hypersensitivity [Unknown]
  - Pleural effusion [Recovered/Resolved]
  - Immunodeficiency [Unknown]
  - Drug dose omission [Unknown]

NARRATIVE: CASE EVENT DATE: 201506
